FAERS Safety Report 21440685 (Version 2)
Quarter: 2022Q4

REPORT INFORMATION
  Report Type: Spontaneous
  Country: RO (occurrence: RO)
  Receive Date: 20221011
  Receipt Date: 20221027
  Transmission Date: 20230113
  Serious: Yes (Disabling, Other)
  Sender: FDA-Public Use
  Company Number: RO-ALNYLAM PHARMACEUTICALS, INC.-ALN-2022-003483

PATIENT

DRUGS (4)
  1. GIVLAARI [Suspect]
     Active Substance: GIVOSIRAN SODIUM
     Indication: Porphyria acute
     Dosage: 2.5 MILLIGRAM/KILOGRAM, MONTHLY
     Route: 058
     Dates: start: 20220625
  2. GIVLAARI [Suspect]
     Active Substance: GIVOSIRAN SODIUM
     Dosage: UNK
     Route: 065
     Dates: start: 20220928
  3. VITAMIN B6 [Concomitant]
     Active Substance: PYRIDOXINE HYDROCHLORIDE
     Indication: Product used for unknown indication
     Route: 065
  4. FOLIC ACID [Concomitant]
     Active Substance: FOLIC ACID
     Indication: Product used for unknown indication
     Route: 065

REACTIONS (8)
  - Haematochezia [Not Recovered/Not Resolved]
  - Clostridium difficile colitis [Unknown]
  - Enteritis [Unknown]
  - Gastrointestinal oedema [Unknown]
  - Colonoscopy abnormal [Unknown]
  - Giardiasis [Unknown]
  - Skin discolouration [Unknown]
  - Product administration error [Unknown]

NARRATIVE: CASE EVENT DATE: 20220829
